FAERS Safety Report 23217310 (Version 2)
Quarter: 2025Q2

REPORT INFORMATION
  Report Type: Report from Study
  Country: JP (occurrence: JP)
  Receive Date: 20231122
  Receipt Date: 20250415
  Transmission Date: 20250716
  Serious: Yes (Hospitalization, Other)
  Sender: ALEXION PHARMACEUTICALS
  Company Number: JP-ALXN-A202302673

PATIENT
  Age: 36 Year
  Weight: 76.2 kg

DRUGS (9)
  1. ULTOMIRIS [Suspect]
     Active Substance: RAVULIZUMAB-CWVZ
     Indication: Myasthenia gravis
  2. ULTOMIRIS [Suspect]
     Active Substance: RAVULIZUMAB-CWVZ
     Dosage: 3300 MILLIGRAM, Q8W
  3. NEORAL [Concomitant]
     Active Substance: CYCLOSPORINE
     Indication: Myasthenia gravis
  4. PREDONINE [Concomitant]
     Active Substance: PREDNISOLONE
     Indication: Myasthenia gravis
  5. PREDONINE [Concomitant]
     Active Substance: PREDNISOLONE
  6. PREDONINE [Concomitant]
     Active Substance: PREDNISOLONE
  7. PREDONINE [Concomitant]
     Active Substance: PREDNISOLONE
  8. PREDONINE [Concomitant]
     Active Substance: PREDNISOLONE
  9. MESTINON [Concomitant]
     Active Substance: PYRIDOSTIGMINE BROMIDE
     Indication: Myasthenia gravis

REACTIONS (3)
  - Influenza [Recovered/Resolved]
  - Myasthenia gravis [Recovered/Resolved]
  - Drug ineffective [Unknown]
